FAERS Safety Report 23344217 (Version 1)
Quarter: 2023Q4

REPORT INFORMATION
  Report Type: Report from Study
  Country: US (occurrence: US)
  Receive Date: 20231228
  Receipt Date: 20231228
  Transmission Date: 20240109
  Serious: Yes (Hospitalization, Other)
  Sender: FDA-Public Use
  Company Number: US-ABBVIE-5510812

PATIENT
  Age: 81 Year
  Sex: Female

DRUGS (2)
  1. HUMIRA [Suspect]
     Active Substance: ADALIMUMAB
     Indication: Rheumatoid arthritis
     Dosage: FORM STRENGTH: 40 MILLIGRAM
     Route: 058
     Dates: start: 20220921
  2. HUMIRA [Suspect]
     Active Substance: ADALIMUMAB
     Dosage: FORM STRENGTH: 40 MILLIGRAM
     Route: 058
     Dates: start: 20231123

REACTIONS (6)
  - Extrasystoles [Unknown]
  - Musculoskeletal stiffness [Unknown]
  - Syncope [Unknown]
  - Pain in extremity [Not Recovered/Not Resolved]
  - Blood pressure abnormal [Unknown]
  - Post procedural contusion [Recovering/Resolving]

NARRATIVE: CASE EVENT DATE: 20231022
